FAERS Safety Report 5313658-X (Version None)
Quarter: 2007Q2

REPORT INFORMATION
  Report Type: 
  Country: None (occurrence: None)
  Receive Date: 20070501
  Receipt Date: 20070423
  Transmission Date: 20071010
  Serious: Yes (Other)
  Sender: FDA-Public Use
  Company Number: JP-BRISTOL-MYERS SQUIBB COMPANY-13764964

PATIENT
  Age: 10 Year
  Sex: Female
  Weight: 31 kg

DRUGS (5)
  1. ENDOXAN [Suspect]
     Indication: LYMPHOMA
  2. METHOTREXATE [Suspect]
     Indication: LYMPHOMA
  3. VINCRISTINE SULFATE [Suspect]
     Indication: LYMPHOMA
  4. PREDONINE [Suspect]
     Indication: LYMPHOMA
  5. PIRARUBICIN HCL [Suspect]
     Indication: LYMPHOMA

REACTIONS (4)
  - CONSTIPATION [None]
  - INFECTION [None]
  - STOMATITIS [None]
  - WHITE BLOOD CELL COUNT DECREASED [None]
